FAERS Safety Report 15648300 (Version 5)
Quarter: 2019Q1

REPORT INFORMATION
  Report Type: Spontaneous
  Country: US (occurrence: US)
  Receive Date: 20181122
  Receipt Date: 20190123
  Transmission Date: 20190417
  Serious: Yes (Other)
  Sender: FDA-Public Use
  Company Number: US-PFIZER INC-2018474277

PATIENT
  Age: 46 Year
  Sex: Male
  Weight: 78 kg

DRUGS (7)
  1. LYRICA [Suspect]
     Active Substance: PREGABALIN
     Indication: BACK PAIN
     Dosage: 300 MG, 2X/DAY
  2. LYRICA [Suspect]
     Active Substance: PREGABALIN
     Dosage: 375 MG, 1X/DAY
  3. LYRICA [Suspect]
     Active Substance: PREGABALIN
     Dosage: 375 MG, DAILY (1 IN THE AM, THE NEXT DOSE IS ABOUT 1-1.5 HOURS LATER AND THE LAST ONE IN THE EVENING
  4. GABAPENTIN. [Concomitant]
     Active Substance: GABAPENTIN
     Dosage: UNK
  5. LYRICA [Suspect]
     Active Substance: PREGABALIN
     Indication: SPINAL COLUMN STENOSIS
     Dosage: 275 MG, 2X/DAY
  6. LYRICA [Suspect]
     Active Substance: PREGABALIN
     Dosage: 375 MG, DAILY (1 IN THE AM, 1 AT NOON AND 1 IN THE EVENING)
  7. LYRICA [Suspect]
     Active Substance: PREGABALIN
     Dosage: UNK

REACTIONS (12)
  - Libido decreased [Unknown]
  - Feeling abnormal [Unknown]
  - Visual impairment [Unknown]
  - Anxiety [Unknown]
  - Withdrawal syndrome [Unknown]
  - Head injury [Unknown]
  - Disturbance in attention [Unknown]
  - Prostatic disorder [Unknown]
  - Hypermetropia [Unknown]
  - Mood swings [Unknown]
  - Cardiac flutter [Unknown]
  - Nocturia [Unknown]

NARRATIVE: CASE EVENT DATE: 201811
